FAERS Safety Report 12922532 (Version 6)
Quarter: 2018Q1

REPORT INFORMATION
  Report Type: Spontaneous
  Country: US (occurrence: US)
  Receive Date: 20161109
  Receipt Date: 20180323
  Transmission Date: 20180508
  Serious: Yes (Hospitalization)
  Sender: FDA-Public Use
  Company Number: US-ASTRAZENECA-2016SE91430

PATIENT
  Age: 88 Year
  Sex: Male

DRUGS (1)
  1. TUDORZA PRESSAIR [Suspect]
     Active Substance: ACLIDINIUM BROMIDE
     Indication: CHRONIC OBSTRUCTIVE PULMONARY DISEASE
     Dosage: 400 MCG, ONE INHALATION TWICE A DAY, 1 PUFF IN THE MORNING AND 1 PUFF AT NIGHT
     Route: 055

REACTIONS (9)
  - Parkinson^s disease [Not Recovered/Not Resolved]
  - Device issue [Not Recovered/Not Resolved]
  - Malaise [Unknown]
  - Intentional product misuse [Unknown]
  - Drug dose omission [Unknown]
  - Pneumonia [Recovered/Resolved]
  - Sepsis [Recovered/Resolved]
  - Device malfunction [Unknown]
  - Dementia [Not Recovered/Not Resolved]

NARRATIVE: CASE EVENT DATE: 2016
